FAERS Safety Report 9385138 (Version 2)
Quarter: 2013Q3

REPORT INFORMATION
  Report Type: Spontaneous
  Country: US (occurrence: US)
  Receive Date: 20130705
  Receipt Date: 20130716
  Transmission Date: 20140515
  Serious: Yes (Death)
  Sender: FDA-Public Use
  Company Number: US-UCBSA-090409

PATIENT
  Sex: Female
  Weight: 90.7 kg

DRUGS (9)
  1. KEPPRA [Suspect]
     Indication: CONVULSION
     Dosage: STRENGTH: 500 MG (1250 UNITS UNSPECIFIED)
  2. HYZAAR [Concomitant]
     Indication: ATRIAL FIBRILLATION
     Dosage: DOSE STRENGTH : 100/25
     Dates: end: 20130218
  3. TOPROL X2 [Concomitant]
     Indication: ATRIAL FIBRILLATION
     Dates: end: 20130218
  4. HYDROCHOLRTHIAZIDE [Concomitant]
     Indication: ATRIAL FIBRILLATION
     Dates: end: 20130218
  5. HYDROCHOLRTHIAZIDE [Concomitant]
     Indication: ATRIAL FIBRILLATION
     Dates: end: 20130218
  6. HYDROCHOLRTHIAZIDE [Concomitant]
     Indication: ATRIAL FIBRILLATION
     Dates: end: 20130218
  7. HYDROCHOLRTHIAZIDE [Concomitant]
     Indication: ATRIAL FIBRILLATION
     Dates: end: 20130218
  8. ASPRIN [Concomitant]
     Indication: CEREBROVASCULAR ACCIDENT
     Dates: end: 20130218
  9. DILANTIN [Concomitant]

REACTIONS (1)
  - Brain neoplasm [Fatal]
